FAERS Safety Report 21636069 (Version 1)
Quarter: 2022Q4

REPORT INFORMATION
  Report Type: Spontaneous
  Country: JP (occurrence: JP)
  Receive Date: 20221123
  Receipt Date: 20221123
  Transmission Date: 20230113
  Serious: Yes (Other)
  Sender: FDA-Public Use
  Company Number: JP-STRIDES ARCOLAB LIMITED-2022SP015587

PATIENT
  Age: 37 Year
  Sex: Female

DRUGS (5)
  1. DOXORUBICIN [Suspect]
     Active Substance: DOXORUBICIN
     Indication: Breast cancer stage II
     Dosage: 60 MILLIGRAM/SQ. METER, EVERY 3 WEEKS, ADMINISTERED UNDER THE AC CHEMOTHERAPY REGIMEN
     Route: 065
  2. DEXAMETHASONE [Suspect]
     Active Substance: DEXAMETHASONE
     Indication: Antiemetic supportive care
     Dosage: UNK
     Route: 065
  3. METOCLOPRAMIDE [Suspect]
     Active Substance: METOCLOPRAMIDE
     Indication: Antiemetic supportive care
     Dosage: UNK
     Route: 065
  4. CYCLOPHOSPHAMIDE [Suspect]
     Active Substance: CYCLOPHOSPHAMIDE
     Indication: Breast cancer stage II
     Dosage: 600 MILLIGRAM/SQ. METER, EVERY 3 WEEKS, ADMINISTERED UNDER THE AC CHEMOTHERAPY REGIMEN
     Route: 065
  5. GRANISETRON [Suspect]
     Active Substance: GRANISETRON
     Indication: Antiemetic supportive care
     Dosage: UNK
     Route: 065

REACTIONS (4)
  - Premature delivery [Unknown]
  - Nausea [Unknown]
  - Maternal exposure during pregnancy [Unknown]
  - Off label use [Unknown]
